FAERS Safety Report 10150713 (Version 1)
Quarter: 2014Q2

REPORT INFORMATION
  Report Type: Spontaneous
  Country: US (occurrence: US)
  Receive Date: 20140502
  Receipt Date: 20140502
  Transmission Date: 20141212
  Serious: Yes (Other)
  Sender: FDA-Public Use
  Company Number: US-BAYER-2014-064687

PATIENT
  Age: 33 Year
  Sex: Female
  Weight: 93.88 kg

DRUGS (4)
  1. YASMIN [Suspect]
  2. ASACOL [Concomitant]
     Dosage: 400 MG, UNK
     Dates: start: 20100619
  3. PREDNISONE [Concomitant]
     Indication: COLITIS ULCERATIVE
     Dosage: 5 WEEKS, TAPERING COURSE
  4. ALBUTEROL [Concomitant]
     Indication: COUGH
     Dosage: 1-2 PUFFS EVERY 4 HOURS AS NEEDED, INHALATION

REACTIONS (1)
  - Deep vein thrombosis [Recovered/Resolved]
